FAERS Safety Report 8246994-8 (Version None)
Quarter: 2012Q1

REPORT INFORMATION
  Report Type: 
  Country: None (occurrence: None)
  Receive Date: 20120330
  Receipt Date: 20120330
  Transmission Date: 20120608
  Serious: No
  Sender: FDA-Public Use
  Company Number: None

PATIENT
  Sex: Male

DRUGS (1)
  1. DEXAMETHASONE [Suspect]
     Indication: MULTIPLE MYELOMA

REACTIONS (1)
  - DIVERTICULITIS [None]
